FAERS Safety Report 6880008-7 (Version None)
Quarter: 2010Q3

REPORT INFORMATION
  Report Type: 
  Country: None (occurrence: None)
  Receive Date: 20100728
  Receipt Date: 20100719
  Transmission Date: 20110219
  Serious: Yes (Disabling, Other)
  Sender: FDA-Public Use
  Company Number: PHHY2010FR42201

PATIENT
  Sex: Female

DRUGS (2)
  1. TRILEPTAL [Suspect]
     Dosage: 1200 MG, QD
     Route: 048
     Dates: start: 20100312
  2. DEPAKENE [Concomitant]
     Indication: EPILEPSY
     Dosage: 1500 MG PER DAY
     Route: 046
     Dates: start: 20100130, end: 20100507

REACTIONS (2)
  - ANTINUCLEAR ANTIBODY POSITIVE [None]
  - ARTHRALGIA [None]
